FAERS Safety Report 22660238 (Version 1)
Quarter: 2023Q2

REPORT INFORMATION
  Report Type: Spontaneous
  Country: GB (occurrence: GB)
  Receive Date: 20230630
  Receipt Date: 20230630
  Transmission Date: 20230722
  Serious: No
  Sender: FDA-Public Use
  Company Number: GB-JAZZ-2022-GB-038261

PATIENT
  Age: 3 Year
  Sex: Male

DRUGS (1)
  1. EPIDIOLEX [Suspect]
     Active Substance: CANNABIDIOL
     Indication: Product used for unknown indication
     Dosage: UNK

REACTIONS (8)
  - Fall [Unknown]
  - Drooling [Unknown]
  - Dysarthria [Unknown]
  - Poor quality sleep [Unknown]
  - Pain [Unknown]
  - Gait disturbance [Unknown]
  - Nail injury [Unknown]
  - Treatment noncompliance [Unknown]
